FAERS Safety Report 12305930 (Version 1)
Quarter: 2016Q2

REPORT INFORMATION
  Report Type: Spontaneous
  Country: KR (occurrence: KR)
  Receive Date: 20160426
  Receipt Date: 20160426
  Transmission Date: 20160815
  Serious: Yes (Other)
  Sender: FDA-Public Use
  Company Number: KR-CELGENEUS-KOR-2016043599

PATIENT

DRUGS (1)
  1. THALIDOMIDE CELGENE [Suspect]
     Active Substance: THALIDOMIDE
     Indication: PLASMA CELL MYELOMA
     Dosage: 50-200MG
     Route: 048
     Dates: start: 200606, end: 201404

REACTIONS (6)
  - Hepatic failure [Unknown]
  - Thrombosis [Unknown]
  - Toxicity to various agents [Unknown]
  - Plasma cell myeloma [Unknown]
  - Constipation [Unknown]
  - Eczema [Unknown]
